FAERS Safety Report 9182813 (Version 1)
Quarter: 2013Q1

REPORT INFORMATION
  Report Type: Spontaneous
  Country: US (occurrence: US)
  Receive Date: 20130322
  Receipt Date: 20130322
  Transmission Date: 20140127
  Serious: Yes (Other)
  Sender: FDA-Public Use
  Company Number: US-BAYER-2013-033840

PATIENT
  Sex: Male

DRUGS (1)
  1. ALEVE [Suspect]
     Indication: GOUT
     Dosage: 1 OR 2 TAB, PER DAY

REACTIONS (3)
  - Apparent death [None]
  - Vasoconstriction [None]
  - Incorrect drug administration duration [None]
